FAERS Safety Report 8052608-2 (Version None)
Quarter: 2012Q1

REPORT INFORMATION
  Report Type: 
  Country: None (occurrence: None)
  Receive Date: 20120118
  Receipt Date: 20120109
  Transmission Date: 20120608
  Serious: Yes (Hospitalization)
  Sender: FDA-Public Use
  Company Number: US-ASTELLAS-2011US008394

PATIENT
  Sex: Male

DRUGS (2)
  1. VESICARE [Suspect]
     Indication: INCONTINENCE
     Dosage: 10 MG, UNKNOWN/D
     Route: 048
     Dates: start: 20100712, end: 20110101
  2. VESICARE [Suspect]
     Indication: MICTURITION URGENCY
     Dosage: 10 MG, UNKNOWN/D
     Route: 048
     Dates: start: 20110101

REACTIONS (4)
  - FALL [None]
  - NOCTURIA [None]
  - DRUG INEFFECTIVE [None]
  - HAEMORRHAGE [None]
